FAERS Safety Report 6818690-2 (Version None)
Quarter: 2010Q3

REPORT INFORMATION
  Report Type: 
  Country: None (occurrence: None)
  Receive Date: 20100706
  Receipt Date: 20100622
  Transmission Date: 20110219
  Serious: Yes (Other)
  Sender: FDA-Public Use
  Company Number: PH-ELI_LILLY_AND_COMPANY-PH201006007097

PATIENT
  Age: 46 Year
  Sex: Female

DRUGS (4)
  1. ZYPREXA [Suspect]
     Indication: PSYCHOTIC DISORDER
     Dosage: 5 MG, DAILY (1/D)
     Route: 048
     Dates: start: 20100614, end: 20100616
  2. ZYPREXA [Suspect]
     Dosage: 5 MG, 2/D
     Route: 048
     Dates: start: 20100617, end: 20100617
  3. ZYPREXA [Suspect]
     Dosage: 5 MG, DAILY (1/D)
     Route: 048
     Dates: start: 20100619, end: 20100620
  4. AMLODIPINE [Concomitant]
     Dosage: 5 MG, DAILY (1/D)

REACTIONS (2)
  - DIZZINESS [None]
  - HYPOTENSION [None]
